FAERS Safety Report 4597480-8 (Version None)
Quarter: 2005Q1

REPORT INFORMATION
  Report Type: 
  Country: None (occurrence: None)
  Receive Date: 20050303
  Receipt Date: 20041014
  Transmission Date: 20050727
  Serious: Yes (Death, Life-Threatening, Hospitalization)
  Sender: FDA-Public Use
  Company Number: DE-ROCHE-383162

PATIENT
  Age: 54 Year
  Sex: Male

DRUGS (27)
  1. BLINDED DACLIZUMAB [Suspect]
     Route: 042
     Dates: start: 20041006, end: 20041126
  2. MYCOPHENOLATE MOFETIL [Suspect]
     Route: 042
     Dates: start: 20041007, end: 20041123
  3. CYCLOSPORINE [Suspect]
     Dosage: TAPERED DOSE.
     Route: 042
     Dates: start: 20041007, end: 20050117
  4. PREDNISOLONE [Suspect]
     Route: 042
     Dates: start: 20041007, end: 20041121
  5. PREDNISOLONE [Suspect]
     Route: 042
     Dates: start: 20041214, end: 20050117
  6. PREDNISOLONE [Suspect]
     Route: 048
     Dates: start: 20041122, end: 20041213
  7. SULBACTAM [Concomitant]
     Route: 042
     Dates: start: 20041018
  8. PIPERACILLIN SODIUM [Concomitant]
     Route: 042
     Dates: start: 20041018
  9. ERYTHROMYCIN [Concomitant]
     Route: 042
     Dates: start: 20041020
  10. LEVOFLOXACIN [Concomitant]
     Route: 042
     Dates: start: 20041018
  11. FLUCONAZOLE [Concomitant]
     Route: 042
     Dates: start: 20041023, end: 20050117
  12. GANCICLOVIR [Concomitant]
     Route: 042
     Dates: start: 20041007, end: 20050117
  13. METOCLOPRAMID [Concomitant]
     Dosage: TAPERED DOSE.
     Route: 042
     Dates: start: 20041007, end: 20050117
  14. PANTOPRAZOL [Concomitant]
     Route: 042
     Dates: start: 20041022, end: 20050117
  15. ALBUTEROL [Concomitant]
     Route: 055
     Dates: start: 20041007, end: 20050117
  16. AMFOTERICIN B [Concomitant]
     Route: 048
     Dates: start: 20041008, end: 20041124
  17. FLUCLOXACILLIN [Concomitant]
     Route: 042
     Dates: start: 20041006
  18. ITRACONAZOL [Concomitant]
     Route: 048
     Dates: start: 20041007, end: 20050117
  19. CEFEPIME [Concomitant]
     Route: 042
     Dates: start: 20041007
  20. RANITIDINE HCL [Concomitant]
     Route: 042
     Dates: start: 20041007
  21. URSODEOXYCHOLIC ACID [Concomitant]
     Dosage: ORAL FORM TAKEN 28 OCT TO 24 NOVEMBER 2004 AND INTRAVENOUS FORM TAKEN 10-17 JANUARY 2005 3 X 250 MG+
     Route: 050
     Dates: start: 20041028, end: 20050117
  22. TROPISETRON [Concomitant]
     Dates: start: 20041119
  23. AMITRIPTYLIN [Concomitant]
     Route: 048
     Dates: start: 20041031, end: 20041124
  24. LORAZEPAM [Concomitant]
     Dosage: TAPERED DOSE.
     Route: 048
     Dates: start: 20041120
  25. EPOGEN [Concomitant]
     Route: 042
     Dates: start: 20041115, end: 20050117
  26. IPRATROPIUMBROMID [Concomitant]
     Route: 055
     Dates: start: 20041116, end: 20050117
  27. METOPROLOL [Concomitant]
     Route: 042
     Dates: end: 20050117

REACTIONS (8)
  - ABDOMINAL HAEMATOMA [None]
  - BRONCHOSTENOSIS [None]
  - HAEMOTHORAX [None]
  - LARGE INTESTINE PERFORATION [None]
  - MULTI-ORGAN FAILURE [None]
  - PNEUMONIA [None]
  - RENAL FAILURE ACUTE [None]
  - RESPIRATORY FAILURE [None]
